FAERS Safety Report 8616563-6 (Version None)
Quarter: 2012Q3

REPORT INFORMATION
  Report Type: 
  Country: None (occurrence: None)
  Receive Date: 20120823
  Receipt Date: 20120628
  Transmission Date: 20120928
  Serious: Yes (Other)
  Sender: FDA-Public Use
  Company Number: JP-MSD JAPAN-2012SP036400

PATIENT

DRUGS (27)
  1. ROHYPNOL [Concomitant]
     Indication: DEPRESSION
  2. REBETOL [Suspect]
     Dosage: 200 MG, QD
     Route: 048
     Dates: start: 20120514, end: 20120527
  3. GOODMIN [Concomitant]
     Dosage: 0.5 MG, QD
     Route: 048
  4. PAXIL [Concomitant]
     Dosage: FORM: POR
     Route: 048
  5. MAGLAX (MAGNESIUM OXIDE) [Concomitant]
     Dosage: FORM: POR
     Route: 048
  6. PEGINTERFERON ALFA-2B [Suspect]
     Indication: HEPATITIS C
     Dosage: 1.5 ?G/KG, QW
     Route: 058
     Dates: start: 20120417
  7. REBETOL [Suspect]
     Dosage: 400 MG, QD
     Route: 048
     Dates: start: 20120528
  8. LIVALO [Concomitant]
     Dosage: FORM: POR
     Route: 048
  9. SODIUM FERROUS CITRATE [Concomitant]
     Indication: IRON DEFICIENCY ANAEMIA
  10. CLARITIN REDITABS [Concomitant]
     Dosage: FORM: POR
     Route: 048
  11. ROHYPNOL [Concomitant]
     Dosage: FORM: POR
     Route: 048
  12. LORAZEPAM [Concomitant]
     Dosage: FORM: POR
     Route: 048
  13. PAXIL [Concomitant]
     Indication: DEPRESSION
  14. LORAZEPAM [Concomitant]
     Indication: DEPRESSION
  15. CLARITIN REDITABS [Concomitant]
     Indication: PROPHYLAXIS
  16. SEROQUEL [Concomitant]
     Dosage: FORM: POR
     Route: 048
  17. SEROQUEL [Concomitant]
     Indication: DEPRESSION
  18. EPADEL [Concomitant]
     Dosage: FORM: POR
     Route: 048
  19. EPADEL [Concomitant]
     Indication: HYPERLIPIDAEMIA
  20. SODIUM FERROUS CITRATE [Concomitant]
     Dosage: FORM: POR
     Route: 048
  21. TOLEDOMIN [Concomitant]
     Dosage: FORM: POR
     Route: 048
  22. TOLEDOMIN [Concomitant]
     Indication: DEPRESSION
  23. REBETOL [Suspect]
     Indication: HEPATITIS C
     Dosage: 600 MG, QD
     Route: 048
     Dates: start: 20120417, end: 20120513
  24. ANTIVIRAL (UNSPECIFIED) [Suspect]
     Indication: HEPATITIS C
     Dosage: UNK UNK, UNKNOWN
     Route: 048
     Dates: start: 20120417
  25. LIVALO [Concomitant]
     Indication: HYPERLIPIDAEMIA
  26. GOODMIN [Concomitant]
     Indication: DEPRESSION
  27. MAGLAX (MAGNESIUM OXIDE) [Concomitant]
     Indication: CONSTIPATION

REACTIONS (1)
  - ANAEMIA [None]
